FAERS Safety Report 19490665 (Version 1)
Quarter: 2021Q3

REPORT INFORMATION
  Report Type: Spontaneous
  Country: US (occurrence: US)
  Receive Date: 20210705
  Receipt Date: 20210705
  Transmission Date: 20211014
  Serious: Yes (Hospitalization, Other)
  Sender: FDA-Public Use
  Company Number: US-VISTAPHARM, INC.-VER202106-001528

PATIENT
  Age: 38 Year
  Sex: Male

DRUGS (1)
  1. HYDROCODONE AND ACETAMINOPHEN [Suspect]
     Active Substance: ACETAMINOPHEN\HYDROCODONE
     Indication: PRODUCT USED FOR UNKNOWN INDICATION
     Dosage: TWO HUNDRED FIVE?HUNDRED?MILLIGRAM TABLETS
     Route: 048

REACTIONS (4)
  - Methaemoglobinaemia [Unknown]
  - Haemolytic anaemia [Unknown]
  - Toxicity to various agents [Unknown]
  - Overdose [Unknown]
